FAERS Safety Report 9249076 (Version 2)
Quarter: 2013Q2

REPORT INFORMATION
  Report Type: Other
  Country: DK (occurrence: DK)
  Receive Date: 20130423
  Receipt Date: 20130515
  Transmission Date: 20140414
  Serious: Yes (Other)
  Sender: FDA-Public Use
  Company Number: DK-NICOBRDEVP-2013-07020

PATIENT
  Sex: Female

DRUGS (9)
  1. VINORELBINE (UNKNOWN) [Suspect]
     Indication: PRODUCT USED FOR UNKNOWN INDICATION
     Dosage: UNK, UNKNOWN
     Route: 065
  2. EPIRUBICIN HYDROCHLORIDE (UNKNOWN) [Suspect]
     Indication: PRODUCT USED FOR UNKNOWN INDICATION
     Dosage: UNK
     Route: 065
     Dates: start: 201106, end: 201201
  3. GEMCITABINE (UNKNOWN) [Suspect]
     Indication: PRODUCT USED FOR UNKNOWN INDICATION
     Dosage: UNK, UNKNOWN
     Route: 065
  4. HERCEPTIN [Suspect]
     Indication: BREAST CANCER
     Dosage: 6 MG/KG, EVERY 3 WEEKS
     Route: 065
     Dates: start: 20090316, end: 20100913
  5. TAXOL [Suspect]
     Indication: BREAST CANCER
     Dosage: 75 MG/SQ M, WEEKLY
     Route: 065
     Dates: start: 20100712, end: 20110328
  6. XELODA [Suspect]
     Indication: PRODUCT USED FOR UNKNOWN INDICATION
     Dosage: UNK
     Route: 065
     Dates: start: 201106, end: 201111
  7. HALAVEN [Suspect]
     Indication: PRODUCT USED FOR UNKNOWN INDICATION
     Dosage: UNK, UNKNOWN
     Route: 065
     Dates: start: 201201, end: 201206
  8. LAPATINIB [Suspect]
     Indication: PRODUCT USED FOR UNKNOWN INDICATION
     Dosage: UNK, UNKNOWN
     Route: 065
     Dates: start: 201106, end: 201111
  9. TAXOTERE [Suspect]
     Indication: PRODUCT USED FOR UNKNOWN INDICATION
     Dosage: UNK, UNKNOWN
     Route: 065

REACTIONS (2)
  - Disease progression [Not Recovered/Not Resolved]
  - Hypertension [Not Recovered/Not Resolved]
